FAERS Safety Report 10270678 (Version 3)
Quarter: 2014Q3

REPORT INFORMATION
  Report Type: Spontaneous
  Country: FR (occurrence: FR)
  Receive Date: 20140701
  Receipt Date: 20140929
  Transmission Date: 20150326
  Serious: Yes (Hospitalization)
  Sender: FDA-Public Use
  Company Number: FR-ASTRAZENECA-2014SE40052

PATIENT
  Age: 983 Month
  Sex: Male

DRUGS (11)
  1. ALIMTA [Concomitant]
     Active Substance: PEMETREXED DISODIUM
     Dosage: 950 MG, THREE COURSES
     Dates: start: 201112, end: 201207
  2. CARBOPLATINE [Concomitant]
     Active Substance: CARBOPLATIN
     Dosage: 470 MG, THREE COURSES
     Dates: start: 201112, end: 201207
  3. NASONEX [Concomitant]
     Active Substance: MOMETASONE FUROATE
  4. PREDNISONE. [Suspect]
     Active Substance: PREDNISONE
     Route: 048
     Dates: start: 201306
  5. CARBOPLATINE [Concomitant]
     Active Substance: CARBOPLATIN
     Dosage: 400 MG, THREE COURSES
     Dates: start: 201207
  6. OLMETEC [Suspect]
     Active Substance: OLMESARTAN MEDOXOMIL
     Route: 048
  7. INEXIUM [Suspect]
     Active Substance: ESOMEPRAZOLE
     Route: 048
  8. OXACILLINE [Concomitant]
     Active Substance: OXACILLIN SODIUM
     Route: 048
     Dates: start: 20140308
  9. AVASTIN [Concomitant]
     Active Substance: BEVACIZUMAB
     Dosage: 600 MG, THREE COURSES
     Dates: start: 201207
  10. IRESSA [Suspect]
     Active Substance: GEFITINIB
     Indication: LUNG NEOPLASM MALIGNANT
     Route: 048
     Dates: start: 2012
  11. TAXOL [Concomitant]
     Active Substance: PACLITAXEL
     Dosage: 320 MG, THREE COURSES
     Dates: start: 201207

REACTIONS (1)
  - Cerebellar ataxia [Not Recovered/Not Resolved]

NARRATIVE: CASE EVENT DATE: 201401
